FAERS Safety Report 20293477 (Version 1)
Quarter: 2022Q1

REPORT INFORMATION
  Report Type: Spontaneous
  Country: US (occurrence: US)
  Receive Date: 20220104
  Receipt Date: 20220104
  Transmission Date: 20220423
  Serious: No
  Sender: FDA-Public Use
  Company Number: US-COOPERSURGICAL, INC.-US-2021CPS000274

PATIENT
  Age: 24 Year
  Sex: Female
  Weight: 69.388 kg

DRUGS (2)
  1. PARAGARD T 380A [Suspect]
     Active Substance: COPPER
     Indication: Contraception
     Dosage: UNK
     Route: 015
     Dates: start: 20170202
  2. CYMBALTA [Concomitant]
     Active Substance: DULOXETINE HYDROCHLORIDE
     Indication: Mixed anxiety and depressive disorder
     Dosage: UNK
     Route: 065

REACTIONS (4)
  - Abnormal uterine bleeding [Unknown]
  - Vaginal discharge [Unknown]
  - Dyspareunia [Unknown]
  - Device dislocation [Unknown]

NARRATIVE: CASE EVENT DATE: 20210122
